FAERS Safety Report 7987556-7 (Version None)
Quarter: 2011Q4

REPORT INFORMATION
  Report Type: 
  Country: None (occurrence: None)
  Receive Date: 20111216
  Receipt Date: 20110412
  Transmission Date: 20120403
  Serious: Yes (Other)
  Sender: FDA-Public Use
  Company Number: US-BRISTOL-MYERS SQUIBB COMPANY-15668759

PATIENT
  Age: 13 Year
  Sex: Male

DRUGS (2)
  1. SEROQUEL [Suspect]
  2. ABILIFY [Suspect]

REACTIONS (1)
  - AGRANULOCYTOSIS [None]
